FAERS Safety Report 9353013 (Version 1)
Quarter: 2013Q2

REPORT INFORMATION
  Report Type: Spontaneous
  Country: US (occurrence: None)
  Receive Date: 20130614
  Receipt Date: 20130614
  Transmission Date: 20140414
  Serious: Yes (Disabling)
  Sender: FDA-Public Use
  Company Number: None

PATIENT
  Age: 11 Year
  Sex: Female
  Weight: 31.75 kg

DRUGS (1)
  1. LUPRON DEPOT [Suspect]

REACTIONS (2)
  - Arthralgia [None]
  - Abasia [None]
